FAERS Safety Report 19932715 (Version 1)
Quarter: 2021Q4

REPORT INFORMATION
  Report Type: Spontaneous
  Country: US (occurrence: US)
  Receive Date: 20211007
  Receipt Date: 20211007
  Transmission Date: 20220303
  Serious: Yes (Hospitalization)
  Sender: FDA-Public Use
  Company Number: None

PATIENT
  Age: 44 Year
  Sex: Female
  Weight: 58.5 kg

DRUGS (3)
  1. VENOFER [Suspect]
     Active Substance: IRON SUCROSE
     Indication: Anaemia
     Route: 042
     Dates: start: 20211004, end: 20211004
  2. VITAMIN D [Concomitant]
     Active Substance: VITAMIN D NOS
  3. VITAMIN B12 [Concomitant]
     Active Substance: CYANOCOBALAMIN

REACTIONS (7)
  - Burning sensation [None]
  - Feeling hot [None]
  - Infusion related reaction [None]
  - Hyperhidrosis [None]
  - Dizziness [None]
  - Loss of consciousness [None]
  - Blood pressure decreased [None]

NARRATIVE: CASE EVENT DATE: 20211004
